FAERS Safety Report 5727254-3 (Version None)
Quarter: 2008Q2

REPORT INFORMATION
  Report Type: 
  Country: None (occurrence: None)
  Receive Date: 20080505
  Receipt Date: 20080425
  Transmission Date: 20081010
  Serious: Yes (Hospitalization, Other)
  Sender: FDA-Public Use
  Company Number: PHHY2008US03482

PATIENT
  Age: 80 Year
  Sex: Male

DRUGS (8)
  1. EXJADE [Suspect]
     Indication: IRON OVERLOAD
     Dosage: 1500 MG, QD
     Route: 048
     Dates: start: 20080311
  2. AZACTAM [Concomitant]
  3. CASPOFUNGIN [Concomitant]
  4. FILGRASTIM [Concomitant]
  5. PROTONIX [Concomitant]
  6. VANCOMYCIN [Concomitant]
  7. TIMOLOL MALEATE [Concomitant]
  8. METHYLPREDNISOLONE [Concomitant]

REACTIONS (3)
  - HAEMATURIA [None]
  - PNEUMONIA [None]
  - THROMBOCYTOPENIA [None]
